FAERS Safety Report 17728150 (Version 1)
Quarter: 2020Q2

REPORT INFORMATION
  Report Type: Spontaneous
  Country: US (occurrence: US)
  Receive Date: 20200430
  Receipt Date: 20200430
  Transmission Date: 20200714
  Serious: No
  Sender: FDA-Public Use
  Company Number: US-ABBVIE-20K-163-3285036-00

PATIENT
  Weight: 81.72 kg

DRUGS (1)
  1. CREON [Suspect]
     Active Substance: PANCRELIPASE AMYLASE\PANCRELIPASE LIPASE\PANCRELIPASE PROTEASE
     Indication: PRODUCT USED FOR UNKNOWN INDICATION
     Dosage: SIX 36,000 UNIT CAPSULES WITH MEAL AND THREE CAPSULES WITH SNACKS
     Route: 048

REACTIONS (2)
  - Abnormal faeces [Not Recovered/Not Resolved]
  - Dyspepsia [Not Recovered/Not Resolved]
